FAERS Safety Report 23300632 (Version 1)
Quarter: 2023Q4

REPORT INFORMATION
  Report Type: Spontaneous
  Country: CA (occurrence: CA)
  Receive Date: 20231215
  Receipt Date: 20231215
  Transmission Date: 20240110
  Serious: Yes (Other)
  Sender: FDA-Public Use
  Company Number: None

PATIENT
  Age: 20 Year
  Sex: Female
  Weight: 44 kg

DRUGS (18)
  1. METHOTREXATE SODIUM [Suspect]
     Active Substance: METHOTREXATE SODIUM
     Indication: Systemic lupus erythematosus
     Route: 065
  2. PREDNISONE [Concomitant]
     Active Substance: PREDNISONE
  3. DIVALPROEX SODIUM [Concomitant]
     Active Substance: DIVALPROEX SODIUM
  4. VITAMIN D [Concomitant]
     Active Substance: VITAMIN D NOS
  5. AZATHIOPRINE [Concomitant]
     Active Substance: AZATHIOPRINE
  6. BIOTIN [Concomitant]
     Active Substance: BIOTIN
  7. CLOBETASOL [Concomitant]
     Active Substance: CLOBETASOL
  8. CLOBETASOL [Concomitant]
     Active Substance: CLOBETASOL
     Route: 061
  9. HYDROXYCHLOROQUINE [Concomitant]
     Active Substance: HYDROXYCHLOROQUINE
  10. HYDROXYCHLOROQUINE SULFATE [Concomitant]
     Active Substance: HYDROXYCHLOROQUINE SULFATE
  11. MYCOPHENOLATE MOFETIL [Concomitant]
     Active Substance: MYCOPHENOLATE MOFETIL
  12. METHOTREXATE SODIUM [Suspect]
     Active Substance: METHOTREXATE SODIUM
     Indication: Systemic lupus erythematosus
     Route: 065
  13. PREDNISONE [Concomitant]
     Active Substance: PREDNISONE
  14. PREDNISONE [Concomitant]
     Active Substance: PREDNISONE
  15. MYCOPHENOLATE MOFETIL [Concomitant]
     Active Substance: MYCOPHENOLATE MOFETIL
  16. MYCOPHENOLATE MOFETIL [Concomitant]
     Active Substance: MYCOPHENOLATE MOFETIL
  17. MYCOPHENOLATE MOFETIL [Concomitant]
     Active Substance: MYCOPHENOLATE MOFETIL
  18. MYCOPHENOLATE MOFETIL [Concomitant]
     Active Substance: MYCOPHENOLATE MOFETIL

REACTIONS (4)
  - Arthritis [Unknown]
  - Cutaneous vasculitis [Unknown]
  - Drug ineffective [Unknown]
  - Off label use [Unknown]
